FAERS Safety Report 9472139 (Version 1)
Quarter: 2013Q3

REPORT INFORMATION
  Report Type: Spontaneous
  Country: FR (occurrence: FR)
  Receive Date: 20130823
  Receipt Date: 20130823
  Transmission Date: 20140515
  Serious: Yes (Other)
  Sender: FDA-Public Use
  Company Number: FR-BRISTOL-MYERS SQUIBB COMPANY-19197979

PATIENT
  Age: 76 Year
  Sex: Female

DRUGS (11)
  1. COUMADIN TABS 2 MG [Suspect]
     Dosage: 1DF:1TAB?COUMADINE 2 MG, SCORED TABLET
     Route: 048
     Dates: start: 20130724, end: 20130729
  2. KEPPRA [Concomitant]
     Indication: RASH MACULAR
     Dates: start: 20130713
  3. TIENAM [Concomitant]
     Indication: KLEBSIELLA INFECTION
     Dates: start: 20130712, end: 20130802
  4. CALCIPARINE [Concomitant]
  5. BACLOFEN [Concomitant]
  6. CETIRIZINE [Concomitant]
  7. DIFFU-K [Concomitant]
     Dosage: 1DF:1TAB?DIFFU K 600MG TABS
  8. DUPHALAC [Concomitant]
  9. URBANYL [Concomitant]
  10. STILNOX [Concomitant]
  11. BRICANYL [Concomitant]

REACTIONS (3)
  - Rash [Recovered/Resolved]
  - Skin exfoliation [Recovered/Resolved]
  - Pruritus [Recovered/Resolved]
